FAERS Safety Report 12628716 (Version 1)
Quarter: 2016Q3

REPORT INFORMATION
  Report Type: Spontaneous
  Country: US (occurrence: None)
  Receive Date: 20160805
  Receipt Date: 20160805
  Transmission Date: 20161109
  Serious: Yes (Life-Threatening, Hospitalization)
  Sender: FDA-Public Use
  Company Number: None

PATIENT
  Age: 45 Year
  Sex: Female
  Weight: 54.1 kg

DRUGS (2)
  1. PRE-NATAL MULTI VITAMIN [Concomitant]
  2. PARAGARD T 380A [Suspect]
     Active Substance: COPPER

REACTIONS (2)
  - Large intestine perforation [None]
  - Device failure [None]

NARRATIVE: CASE EVENT DATE: 20160721
